FAERS Safety Report 7376343-9 (Version None)
Quarter: 2011Q1

REPORT INFORMATION
  Report Type: 
  Country: None (occurrence: None)
  Receive Date: 20110325
  Receipt Date: 20110318
  Transmission Date: 20110831
  Serious: Yes (Death, Life-Threatening, Hospitalization, Other)
  Sender: FDA-Public Use
  Company Number: US-MPIJNJ-2011-00863

PATIENT
  Sex: Male
  Weight: 97.506 kg

DRUGS (1)
  1. VELCADE [Suspect]
     Indication: MULTIPLE MYELOMA
     Dosage: 1 MG/M2, CYCLIC
     Route: 042
     Dates: start: 20100907, end: 20101115

REACTIONS (3)
  - MULTIPLE MYELOMA [None]
  - CYTOMEGALOVIRUS INFECTION [None]
  - PYREXIA [None]
